FAERS Safety Report 8348765 (Version 3)
Quarter: 2013Q1

REPORT INFORMATION
  Report Type: Spontaneous
  Country: US (occurrence: US)
  Receive Date: 20120123
  Receipt Date: 20130124
  Transmission Date: 20140127
  Serious: No
  Sender: FDA-Public Use
  Company Number: PHEH2012US001791

PATIENT
  Sex: Female
  Weight: 85 kg

DRUGS (2)
  1. TASIGNA [Suspect]
     Indication: CHRONIC MYELOID LEUKAEMIA
     Dosage: 400 MG, BID
     Route: 048
     Dates: start: 20090609
  2. INVEGA [Interacting]

REACTIONS (2)
  - Drug interaction [Unknown]
  - Labelled drug-food interaction medication error [Recovered/Resolved]
